FAERS Safety Report 8181502-1 (Version None)
Quarter: 2012Q1

REPORT INFORMATION
  Report Type: 
  Country: None (occurrence: None)
  Receive Date: 20120302
  Receipt Date: 20120229
  Transmission Date: 20120608
  Serious: Yes (Disabling, Other)
  Sender: FDA-Public Use
  Company Number: US-PFIZER INC-2012051624

PATIENT
  Sex: Female
  Weight: 77.098 kg

DRUGS (16)
  1. BELLADONNA ALKALOIDS [Concomitant]
     Dosage: UNK, 1X/DAY
  2. LEVOTHYROXINE [Concomitant]
     Dosage: UNK
  3. FENOFIBRATE [Concomitant]
     Dosage: 134 MG, 1X/DAY
  4. TRAMADOL [Concomitant]
     Dosage: 50 MG, 4X/DAY
  5. HYDROXYZINE [Concomitant]
     Dosage: UNK
  6. PREMARIN [Suspect]
     Indication: MENOPAUSE
     Dosage: UNK
     Route: 048
  7. PREMARIN [Suspect]
     Indication: HYSTERECTOMY
  8. VALTREX [Concomitant]
     Dosage: 500 MG, 1X/DAY
  9. PRILOSEC [Concomitant]
     Indication: GASTROOESOPHAGEAL REFLUX DISEASE
     Dosage: 20 MG, UNK
  10. ENALAPRIL [Concomitant]
     Dosage: 5 MG, 1X/DAY
  11. PRISTIQ [Suspect]
     Indication: DEPRESSION
     Dosage: 50 MG, 1X/DAY
     Route: 048
  12. SOMA [Concomitant]
     Dosage: 350 MG, 1X/DAY
  13. AMBIEN [Concomitant]
     Dosage: 125 MG, 1X/DAY
  14. FLEXERIL [Concomitant]
     Dosage: UNK
  15. SIMVASTATIN [Concomitant]
     Dosage: 40 MG, 1X/DAY
  16. MIRAPEX [Concomitant]
     Dosage: UNK

REACTIONS (2)
  - CHONDROPATHY [None]
  - DEPRESSION [None]
